FAERS Safety Report 7301879-6 (Version None)
Quarter: 2011Q1

REPORT INFORMATION
  Report Type: 
  Country: None (occurrence: None)
  Receive Date: 20110218
  Receipt Date: 20110215
  Transmission Date: 20110831
  Serious: Yes (Other)
  Sender: FDA-Public Use
  Company Number: DE-SANOFI-AVENTIS-2011SA009557

PATIENT
  Age: 48 Year
  Sex: Male

DRUGS (4)
  1. MULTAQ [Suspect]
     Dates: start: 20110112, end: 20110117
  2. ATACAND [Concomitant]
  3. ACETYLSALICYLIC ACID [Concomitant]
  4. NEBIVOLOL HCL [Concomitant]
     Dosage: 1 X 1

REACTIONS (1)
  - BLOOD PRESSURE DECREASED [None]
